FAERS Safety Report 7417293-9 (Version None)
Quarter: 2011Q2

REPORT INFORMATION
  Report Type: 
  Country: None (occurrence: None)
  Receive Date: 20110415
  Receipt Date: 20110412
  Transmission Date: 20111010
  Serious: Yes (Hospitalization)
  Sender: FDA-Public Use
  Company Number: US-BRISTOL-MYERS SQUIBB COMPANY-15668981

PATIENT
  Age: 2 Year
  Sex: Female

DRUGS (1)
  1. ABILIFY [Suspect]
     Dosage: 1DF=1 TABLET

REACTIONS (3)
  - ACCIDENTAL DRUG INTAKE BY CHILD [None]
  - ALTERED STATE OF CONSCIOUSNESS [None]
  - ACCIDENTAL EXPOSURE [None]
